FAERS Safety Report 16246846 (Version 1)
Quarter: 2019Q2

REPORT INFORMATION
  Report Type: Report from Study
  Country: IT (occurrence: SA)
  Receive Date: 20190427
  Receipt Date: 20190427
  Transmission Date: 20190711
  Serious: Yes (Other)
  Sender: FDA-Public Use
  Company Number: IT-ACCORD-124180

PATIENT
  Age: 88 Year
  Sex: Male

DRUGS (1)
  1. ATORVASTATIN/ATORVASTATIN CALCIUM [Suspect]
     Active Substance: ATORVASTATIN CALCIUM
     Indication: PROPHYLAXIS
     Route: 065

REACTIONS (2)
  - Product prescribing error [Unknown]
  - Muscular weakness [Unknown]
